FAERS Safety Report 6502764-X (Version None)
Quarter: 2009Q4

REPORT INFORMATION
  Report Type: 
  Country: None (occurrence: None)
  Receive Date: 20091217
  Receipt Date: 20091203
  Transmission Date: 20100525
  Serious: Yes (Hospitalization)
  Sender: FDA-Public Use
  Company Number: FR-ELI_LILLY_AND_COMPANY-FR200909003257

PATIENT
  Sex: Female

DRUGS (5)
  1. FORTEO [Suspect]
     Indication: SPINAL FRACTURE
     Dosage: 20 UG, DAILY (1/D)
     Route: 058
     Dates: start: 20080401, end: 20090801
  2. KARDEGIC [Concomitant]
     Dosage: 75 MG, DAILY (1/D)
  3. ANAFRANIL [Concomitant]
     Dosage: 50 MG, DAILY (1/D)
     Route: 048
  4. CHONDROSULF [Concomitant]
     Dosage: 3 D/F, DAILY (1/D)
     Route: 065
  5. CLARITIN [Concomitant]
     Dosage: UNK, AS NEEDED
     Route: 065

REACTIONS (1)
  - MULTIPLE MYELOMA [None]
